FAERS Safety Report 8143814-7 (Version None)
Quarter: 2012Q1

REPORT INFORMATION
  Report Type: 
  Country: None (occurrence: None)
  Receive Date: 20120217
  Receipt Date: 20120215
  Transmission Date: 20120608
  Serious: Yes (Hospitalization)
  Sender: FDA-Public Use
  Company Number: US-PFIZER INC-2012041547

PATIENT
  Sex: Female
  Weight: 56.689 kg

DRUGS (5)
  1. AVINZA [Suspect]
     Indication: CERVICAL SPINAL STENOSIS
     Dosage: 30 MG, 1X/DAY
     Route: 048
     Dates: start: 20120101, end: 20120201
  2. NEXIUM [Concomitant]
     Dosage: UNK
  3. PREMARIN [Concomitant]
     Dosage: UNK
  4. OXYCODONE [Concomitant]
     Dosage: UNK
  5. TRAZODONE [Concomitant]
     Dosage: UNK, AS NEEDED

REACTIONS (2)
  - DRUG ERUPTION [None]
  - RASH [None]
